FAERS Safety Report 5338172-7 (Version None)
Quarter: 2007Q2

REPORT INFORMATION
  Report Type: 
  Country: None (occurrence: None)
  Receive Date: 20070327
  Receipt Date: 20070207
  Transmission Date: 20071010
  Serious: Yes (Other)
  Sender: FDA-Public Use
  Company Number: 236332

PATIENT
  Age: 60 Year
  Sex: Female
  Weight: 55.3 kg

DRUGS (1)
  1. AVASTIN [Suspect]
     Indication: COLON CANCER
     Dosage: 290 MG

REACTIONS (1)
  - HYPERTENSION [None]
